FAERS Safety Report 23985503 (Version 1)
Quarter: 2024Q2

REPORT INFORMATION
  Report Type: Spontaneous
  Country: FR (occurrence: FR)
  Receive Date: 20240618
  Receipt Date: 20240618
  Transmission Date: 20240716
  Serious: Yes (Congenital Anomaly)
  Sender: FDA-Public Use
  Company Number: None

PATIENT
  Age: 22 Week

DRUGS (3)
  1. HYDROCORTISONE [Suspect]
     Active Substance: HYDROCORTISONE\HYDROCORTISONE ACETATE
     Indication: Exposure during pregnancy
     Route: 064
     Dates: start: 20230926
  2. HYDROXYCHLOROQUINE DIPHOSPHATE [Suspect]
     Active Substance: HYDROXYCHLOROQUINE DIPHOSPHATE
     Indication: Exposure during pregnancy
     Route: 064
     Dates: start: 20230926
  3. BENLYSTA [Suspect]
     Active Substance: BELIMUMAB
     Indication: Exposure during pregnancy
     Route: 064
     Dates: start: 20230926

REACTIONS (2)
  - Extrasystoles [Recovered/Resolved]
  - Congenital musculoskeletal disorder of skull [Not Recovered/Not Resolved]

NARRATIVE: CASE EVENT DATE: 20240215
